FAERS Safety Report 10085437 (Version 1)
Quarter: 2014Q2

REPORT INFORMATION
  Report Type: Spontaneous
  Country: US (occurrence: US)
  Receive Date: 20140418
  Receipt Date: 20140418
  Transmission Date: 20141212
  Serious: Yes (Hospitalization, Other)
  Sender: FDA-Public Use
  Company Number: US-BIOGENIDEC-2014BI034563

PATIENT
  Age: 67 Year
  Sex: Female

DRUGS (1)
  1. AVONEX [Suspect]
     Indication: MULTIPLE SCLEROSIS
     Route: 030
     Dates: start: 20050504

REACTIONS (13)
  - Lung neoplasm malignant [Recovered/Resolved]
  - Multiple sclerosis relapse [Unknown]
  - Convulsion [Recovered/Resolved]
  - Syncope [Recovered/Resolved]
  - Throat irritation [Not Recovered/Not Resolved]
  - Adjustment disorder [Unknown]
  - Burning sensation [Not Recovered/Not Resolved]
  - Irritability [Unknown]
  - Depression [Not Recovered/Not Resolved]
  - Flushing [Not Recovered/Not Resolved]
  - Pruritus [Not Recovered/Not Resolved]
  - Anxiety [Not Recovered/Not Resolved]
  - Insomnia [Unknown]
